FAERS Safety Report 6358424-1 (Version None)
Quarter: 2009Q3

REPORT INFORMATION
  Report Type: 
  Country: None (occurrence: None)
  Receive Date: 20090916
  Receipt Date: 20090903
  Transmission Date: 20100115
  Serious: No
  Sender: FDA-Public Use
  Company Number: JP-PFIZER INC-2009204298

PATIENT
  Age: 4 Year

DRUGS (1)
  1. GENOTROPIN [Suspect]
     Indication: SMALL FOR DATES BABY
     Dosage: 0.6 MG, 1X/DAY
     Route: 058
     Dates: start: 20090407

REACTIONS (3)
  - ENTEROCOLITIS [None]
  - POLYDIPSIA [None]
  - THIRST [None]
